FAERS Safety Report 6884045-8 (Version None)
Quarter: 2010Q3

REPORT INFORMATION
  Report Type: 
  Country: None (occurrence: None)
  Receive Date: 20100729
  Receipt Date: 20100716
  Transmission Date: 20110219
  Serious: Yes (Other)
  Sender: FDA-Public Use
  Company Number: PHHY2010KR46969

PATIENT
  Age: 23 Year
  Sex: Female

DRUGS (2)
  1. CLOZARIL [Suspect]
     Dosage: 200 MG DAILY
     Route: 048
  2. ARIPIPRAZOLE [Concomitant]
     Dosage: UNK

REACTIONS (2)
  - PNEUMONIA ASPIRATION [None]
  - WHITE BLOOD CELL COUNT DECREASED [None]
